FAERS Safety Report 18199574 (Version 1)
Quarter: 2020Q3

REPORT INFORMATION
  Report Type: Spontaneous
  Country: DE (occurrence: DE)
  Receive Date: 20200826
  Receipt Date: 20200826
  Transmission Date: 20201103
  Serious: Yes (Hospitalization)
  Sender: FDA-Public Use
  Company Number: DE-009507513-2008DEU011793

PATIENT
  Age: 80 Year
  Sex: Male

DRUGS (10)
  1. TEMOZOLOMIDE. [Suspect]
     Active Substance: TEMOZOLOMIDE
     Dosage: NOT KNOWN MG, LAST ONE ON 26 MAY 2020
     Dates: end: 20200526
  2. DABIGATRAN [Concomitant]
     Active Substance: DABIGATRAN
     Dosage: 150 MG, 1?0?1?0, CAPSULE
     Route: 048
  3. PANTOPRAZOLE [Concomitant]
     Active Substance: PANTOPRAZOLE
     Dosage: 40 MG, 1?0?0?0, TABLETS
     Route: 048
  4. ZOLPIDEM [Concomitant]
     Active Substance: ZOLPIDEM TARTRATE
     Dosage: 5 MG, 0?0?0?1, TABLETS
     Route: 048
  5. GLIMEPIRIDE. [Concomitant]
     Active Substance: GLIMEPIRIDE
     Dosage: 1 MG, 1?0?1?0, TABLETS
     Route: 048
  6. DIGITOXIN [Concomitant]
     Active Substance: DIGITOXIN
     Dosage: 0.05 MG, 1?0?0?0, TABLETS
     Route: 048
  7. DEXAMETHASONE. [Concomitant]
     Active Substance: DEXAMETHASONE
     Dosage: 4 MG, 1?0?0?0, TABLETS
     Route: 048
  8. METOPROLOL. [Concomitant]
     Active Substance: METOPROLOL
     Dosage: 47.5 MG, 1?0?0?0, PROLONGED?RELEASE TABLET
     Route: 048
  9. METOPROLOL. [Concomitant]
     Active Substance: METOPROLOL
     Dosage: 23.75 MG, 0?1?0?0, PROLONGED?RELEASE TABLET
     Route: 048
  10. DIPYRONE [Concomitant]
     Active Substance: DIPYRONE
     Dosage: 500 MG, 1?1?1?1, TABLETS
     Route: 048

REACTIONS (3)
  - General physical health deterioration [Recovering/Resolving]
  - Oedema peripheral [Recovering/Resolving]
  - Gait disturbance [Recovering/Resolving]

NARRATIVE: CASE EVENT DATE: 20200530
